FAERS Safety Report 7569825-8 (Version None)
Quarter: 2011Q2

REPORT INFORMATION
  Report Type: 
  Country: None (occurrence: None)
  Receive Date: 20110621
  Receipt Date: 20110621
  Transmission Date: 20111010
  Serious: Yes (Other)
  Sender: FDA-Public Use
  Company Number: None

PATIENT
  Sex: Female
  Weight: 75.7507 kg

DRUGS (1)
  1. CLINDAMYCIN HCL [Suspect]
     Indication: OROPHARYNGEAL PAIN
     Dosage: 300 MG 4 DAILY ORAL
     Route: 048
     Dates: start: 20110428, end: 20110430

REACTIONS (5)
  - RASH PRURITIC [None]
  - RASH GENERALISED [None]
  - DIARRHOEA [None]
  - RASH ERYTHEMATOUS [None]
  - FAECAL INCONTINENCE [None]
